FAERS Safety Report 23131741 (Version 1)
Quarter: 2023Q4

REPORT INFORMATION
  Report Type: Spontaneous
  Country: CN (occurrence: CN)
  Receive Date: 20231031
  Receipt Date: 20231031
  Transmission Date: 20240110
  Serious: Yes (Other)
  Sender: FDA-Public Use
  Company Number: CN-SANDOZ-SDZ2023CN047458

PATIENT
  Age: 57 Year
  Sex: Male

DRUGS (1)
  1. TOBRAMYCIN AND DEXAMETHASONE [Suspect]
     Active Substance: DEXAMETHASONE\TOBRAMYCIN
     Indication: Foreign body sensation in eyes
     Route: 065

REACTIONS (1)
  - Keratitis fungal [Recovered/Resolved]
